FAERS Safety Report 10788176 (Version 2)
Quarter: 2015Q1

REPORT INFORMATION
  Report Type: Spontaneous
  Country: US (occurrence: US)
  Receive Date: 20150212
  Receipt Date: 20150220
  Transmission Date: 20150721
  Serious: No
  Sender: FDA-Public Use
  Company Number: US-EISAI MEDICAL RESEARCH-EC-2015-003620

PATIENT
  Age: 68 Year
  Sex: Female
  Weight: 128 kg

DRUGS (6)
  1. BELVIQ [Suspect]
     Active Substance: LORCASERIN HYDROCHLORIDE
     Indication: WEIGHT DECREASED
     Route: 048
     Dates: start: 20150126, end: 20150128
  2. JANUMET [Concomitant]
     Active Substance: METFORMIN HYDROCHLORIDE\SITAGLIPTIN PHOSPHATE
     Indication: DIABETES MELLITUS
  3. NAPROSYN [Concomitant]
     Active Substance: NAPROXEN
     Indication: ARTHRITIS
     Dates: start: 1995
  4. INSULIN [Concomitant]
     Active Substance: INSULIN NOS
     Indication: DIABETES MELLITUS
  5. NOVOLIN 70/30 [Concomitant]
     Active Substance: INSULIN HUMAN
     Indication: DIABETES MELLITUS
  6. OXYCODONE [Concomitant]
     Active Substance: OXYCODONE
     Indication: ARTHRITIS
     Dates: start: 1995

REACTIONS (7)
  - Palpitations [Recovering/Resolving]
  - Hypertension [Recovered/Resolved]
  - Somnolence [Recovering/Resolving]
  - Non-cardiac chest pain [Recovered/Resolved]
  - Musculoskeletal stiffness [Recovering/Resolving]
  - Dizziness [Recovered/Resolved]
  - Dry mouth [Recovered/Resolved]

NARRATIVE: CASE EVENT DATE: 20150127
